FAERS Safety Report 23320355 (Version 1)
Quarter: 2023Q4

REPORT INFORMATION
  Report Type: Spontaneous
  Country: US (occurrence: US)
  Receive Date: 20231220
  Receipt Date: 20231220
  Transmission Date: 20240110
  Serious: No
  Sender: FDA-Public Use
  Company Number: US-PROVENTION BIO, INC.-US-PRAG-23-00086

PATIENT
  Age: 39 Year
  Sex: Female

DRUGS (5)
  1. TZIELD [Suspect]
     Active Substance: TEPLIZUMAB-MZWV
     Indication: Diabetes prophylaxis
     Dosage: 121.55 MICROGRAM, SINGLE
     Route: 042
     Dates: start: 20230922, end: 20230922
  2. TZIELD [Suspect]
     Active Substance: TEPLIZUMAB-MZWV
     Dosage: 233.75 MICROGRAM, SINGLE
     Route: 042
     Dates: start: 20230923, end: 20230923
  3. TZIELD [Suspect]
     Active Substance: TEPLIZUMAB-MZWV
     Dosage: 467.5 MICROGRAM, SINGLE
     Route: 042
     Dates: start: 20230924, end: 20230924
  4. TZIELD [Suspect]
     Active Substance: TEPLIZUMAB-MZWV
     Dosage: 935 MICROGRAM, SINGLE
     Route: 042
     Dates: start: 20230929, end: 20230929
  5. TZIELD [Suspect]
     Active Substance: TEPLIZUMAB-MZWV
     Dosage: 1926.1 MCG
     Route: 042
     Dates: start: 20230930, end: 20231005

REACTIONS (8)
  - Dizziness [Unknown]
  - Pruritus [Unknown]
  - Oropharyngeal pain [Unknown]
  - Platelet count abnormal [Unknown]
  - Body temperature increased [Unknown]
  - Nausea [Unknown]
  - Vomiting [Unknown]
  - Rash [Unknown]

NARRATIVE: CASE EVENT DATE: 20230922
